FAERS Safety Report 16750379 (Version 1)
Quarter: 2019Q3

REPORT INFORMATION
  Report Type: Spontaneous
  Country: BE (occurrence: BE)
  Receive Date: 20190828
  Receipt Date: 20190828
  Transmission Date: 20191005
  Serious: Yes (Death, Life-Threatening, Hospitalization)
  Sender: FDA-Public Use
  Company Number: BE-TEVA-2019-BE-1098285

PATIENT
  Age: 65 Year
  Sex: Female

DRUGS (11)
  1. NOREPINEPHRINE. [Suspect]
     Active Substance: NOREPINEPHRINE
     Indication: SUPRAVENTRICULAR TACHYCARDIA
     Dosage: ROUTE:INFUSION, UP TO 6 MICROG/KG/MIN
     Route: 050
  2. MIRTAZAPINE. [Suspect]
     Active Substance: MIRTAZAPINE
     Indication: MENTAL DISORDER
     Dosage: 15 MILLIGRAM DAILY;
     Route: 065
  3. AMISULPRIDE [Suspect]
     Active Substance: AMISULPRIDE
     Indication: MENTAL DISORDER
     Dosage: 50 MILLIGRAM DAILY;
     Route: 065
  4. BUPROPION. [Suspect]
     Active Substance: BUPROPION
     Indication: MENTAL DISORDER
     Dosage: 300 MILLIGRAM DAILY;
     Route: 065
  5. TRAMADOL. [Suspect]
     Active Substance: TRAMADOL
     Indication: MENTAL DISORDER
     Dosage: 300 MILLIGRAM DAILY;
     Route: 065
  6. ARIPIPRAZOLE. [Suspect]
     Active Substance: ARIPIPRAZOLE
     Indication: MENTAL DISORDER
     Dosage: 15 MILLIGRAM DAILY;
     Route: 065
  7. EPINEPHRINE. [Suspect]
     Active Substance: EPINEPHRINE
     Indication: SUPRAVENTRICULAR TACHYCARDIA
     Dosage: ROUTE: INFUSION, UP TO 6 MICROG/KG/MIN
     Route: 050
  8. AMITRIPTYLINE [Suspect]
     Active Substance: AMITRIPTYLINE
     Indication: MENTAL DISORDER
     Dosage: 75 MILLIGRAM DAILY;
     Route: 065
  9. NEFOPAM [Suspect]
     Active Substance: NEFOPAM
     Indication: ANALGESIC THERAPY
     Dosage: 30 MILLIGRAM DAILY;
     Route: 048
  10. NEFOPAM [Suspect]
     Active Substance: NEFOPAM
     Dosage: 120 MILLIGRAM DAILY;
     Route: 048
  11. NEFOPAM [Suspect]
     Active Substance: NEFOPAM
     Dosage: 60 MILLIGRAM DAILY;
     Route: 048

REACTIONS (9)
  - Supraventricular tachycardia [Unknown]
  - Hyperlactacidaemia [Unknown]
  - Chronic obstructive pulmonary disease [Unknown]
  - Drug ineffective [Unknown]
  - Respiratory failure [Unknown]
  - Shock [Fatal]
  - Loss of consciousness [Unknown]
  - Serotonin syndrome [Fatal]
  - Haemodynamic instability [Unknown]
